FAERS Safety Report 4301870-8 (Version None)
Quarter: 2004Q1

REPORT INFORMATION
  Report Type: 
  Country: None (occurrence: None)
  Receive Date: 20040219
  Receipt Date: 20030404
  Transmission Date: 20041129
  Serious: Yes (Other)
  Sender: FDA-Public Use
  Company Number: PHEH2003US02995

PATIENT
  Age: 69 Year
  Sex: Female

DRUGS (4)
  1. LESCOL [Suspect]
  2. SYNTHROID [Concomitant]
  3. FUROSEMIDE [Concomitant]
  4. METOPROLOL [Concomitant]

REACTIONS (3)
  - LIVER DISORDER [None]
  - RASH [None]
  - SKIN DISORDER [None]
